FAERS Safety Report 21381460 (Version 1)
Quarter: 2022Q3

REPORT INFORMATION
  Report Type: Spontaneous
  Country: US (occurrence: None)
  Receive Date: 20220926
  Receipt Date: 20220926
  Transmission Date: 20221026
  Serious: Yes (Life-Threatening, Disabling, Other)
  Sender: FDA-Public Use
  Company Number: None

PATIENT
  Age: 65 Year
  Sex: Female

DRUGS (5)
  1. KETAMINE [Suspect]
     Active Substance: KETAMINE
     Indication: Depression
     Dates: start: 20220629, end: 20220719
  2. LEVOTHYROXINE [Concomitant]
     Active Substance: LEVOTHYROXINE
  3. LISINOPRIL [Concomitant]
     Active Substance: LISINOPRIL
  4. MAGNESIUM [Concomitant]
     Active Substance: MAGNESIUM
  5. L threonate [Concomitant]

REACTIONS (12)
  - Insurance issue [None]
  - Economic problem [None]
  - Depression [None]
  - Crying [None]
  - Anxiety [None]
  - Therapy interrupted [None]
  - Movement disorder [None]
  - Intrusive thoughts [None]
  - Suicidal ideation [None]
  - Illness [None]
  - Fear [None]
  - Withdrawal syndrome [None]

NARRATIVE: CASE EVENT DATE: 20220808
